FAERS Safety Report 4510313-0 (Version None)
Quarter: 2004Q4

REPORT INFORMATION
  Report Type: 
  Country: None (occurrence: None)
  Receive Date: 20041124
  Receipt Date: 20041116
  Transmission Date: 20050328
  Serious: Yes (Hospitalization)
  Sender: FDA-Public Use
  Company Number: US-MERCK-0411USA02842

PATIENT
  Age: 73 Year
  Sex: Male

DRUGS (2)
  1. VIOXX [Suspect]
     Indication: ARTHRITIS
     Route: 048
     Dates: start: 19990101
  2. PROSCAR [Concomitant]
     Route: 048

REACTIONS (2)
  - CHEST PAIN [None]
  - CORONARY ARTERY DISEASE [None]
